FAERS Safety Report 13568166 (Version 2)
Quarter: 2017Q2

REPORT INFORMATION
  Report Type: Spontaneous
  Country: US (occurrence: US)
  Receive Date: 20170522
  Receipt Date: 20170531
  Transmission Date: 20170830
  Serious: Yes (Hospitalization)
  Sender: FDA-Public Use
  Company Number: US-JNJFOC-20170505405

PATIENT
  Age: 69 Year
  Sex: Male
  Weight: 58.46 kg

DRUGS (43)
  1. CHOLECALCIFEROL [Concomitant]
     Active Substance: CHOLECALCIFEROL
  2. ADVAIR HFA [Concomitant]
     Active Substance: FLUTICASONE PROPIONATE\SALMETEROL XINAFOATE
  3. DIPHENHYDRAMINE. [Concomitant]
     Active Substance: DIPHENHYDRAMINE
  4. DEXAMETHASONE. [Concomitant]
     Active Substance: DEXAMETHASONE
     Dates: start: 20170417, end: 20170418
  5. OLANZAPINE. [Concomitant]
     Active Substance: OLANZAPINE
     Indication: PRODUCT USED FOR UNKNOWN INDICATION
  6. ALBUTEROL. [Concomitant]
     Active Substance: ALBUTEROL
  7. HYDROMORPHONE [Concomitant]
     Active Substance: HYDROMORPHONE
  8. BENADRYL [Concomitant]
     Active Substance: DIPHENHYDRAMINE HYDROCHLORIDE
  9. CATHFLO ACTIVASE [Concomitant]
     Active Substance: ALTEPLASE
  10. ACETAMINOPHEN. [Concomitant]
     Active Substance: ACETAMINOPHEN
  11. CEFEPIME [Concomitant]
     Active Substance: CEFEPIME HYDROCHLORIDE
  12. DARATUMUMAB [Suspect]
     Active Substance: DARATUMUMAB
     Indication: HAEMATOLOGICAL MALIGNANCY
     Route: 042
     Dates: start: 20170417, end: 20170417
  13. ACYCLOVIR. [Concomitant]
     Active Substance: ACYCLOVIR
  14. METOPROLOL TARTRATE. [Concomitant]
     Active Substance: METOPROLOL TARTRATE
  15. THERAFLU NF [Concomitant]
  16. K-DUR [Concomitant]
     Active Substance: POTASSIUM CHLORIDE
  17. TAMSULOSIN [Concomitant]
     Active Substance: TAMSULOSIN
  18. BACTRIM [Concomitant]
     Active Substance: SULFAMETHOXAZOLE\TRIMETHOPRIM
  19. ZOLPIDEM [Concomitant]
     Active Substance: ZOLPIDEM\ZOLPIDEM TARTRATE
  20. MAGNESIUM SULFATE. [Concomitant]
     Active Substance: MAGNESIUM SULFATE
  21. ROBITUSSIN (GUAIFENESIN) [Concomitant]
     Active Substance: GUAIFENESIN
  22. MULTI VITAMIN [Concomitant]
     Active Substance: VITAMINS
  23. LIDOCAINE. [Concomitant]
     Active Substance: LIDOCAINE
  24. LOVENOX [Concomitant]
     Active Substance: ENOXAPARIN SODIUM
  25. PROCHLORPERAZINE. [Concomitant]
     Active Substance: PROCHLORPERAZINE
  26. SENOKOT-S [Concomitant]
     Active Substance: DOCUSATE SODIUM\SENNOSIDES
  27. ATARAX [Concomitant]
     Active Substance: HYDROXYZINE HYDROCHLORIDE
  28. MAALOX ANTACID [Concomitant]
     Active Substance: ALUMINUM HYDROXIDE\DIMETHICONE\MAGNESIUM HYDROXIDE
  29. OXYCODONE [Concomitant]
     Active Substance: OXYCODONE
  30. PREDNISONE. [Concomitant]
     Active Substance: PREDNISONE
     Indication: PRODUCT USED FOR UNKNOWN INDICATION
  31. LEVOFLOXACIN. [Concomitant]
     Active Substance: LEVOFLOXACIN
     Indication: PRODUCT USED FOR UNKNOWN INDICATION
  32. MONTELUKAST [Concomitant]
     Active Substance: MONTELUKAST SODIUM
  33. IMODIUM [Concomitant]
     Active Substance: LOPERAMIDE HYDROCHLORIDE
  34. GLYCERIN. [Concomitant]
     Active Substance: GLYCERIN
  35. PROZAC [Concomitant]
     Active Substance: FLUOXETINE HYDROCHLORIDE
  36. TESTOSTERONE. [Concomitant]
     Active Substance: TESTOSTERONE
  37. POMALIDOMIDE [Suspect]
     Active Substance: POMALIDOMIDE
     Indication: HAEMATOLOGICAL MALIGNANCY
     Route: 048
     Dates: start: 20170417, end: 20170423
  38. CALCIUM CARBONATE. [Concomitant]
     Active Substance: CALCIUM CARBONATE
  39. HYDROCHLOROTHIAZIDE. [Concomitant]
     Active Substance: HYDROCHLOROTHIAZIDE
  40. ACETAMINOPHEN W/HYDROCODONE [Concomitant]
     Active Substance: ACETAMINOPHEN\HYDROCODONE
  41. HYDROXYZINE HCL [Concomitant]
     Active Substance: HYDROXYZINE HYDROCHLORIDE
  42. DUONEB [Concomitant]
     Active Substance: ALBUTEROL SULFATE\IPRATROPIUM BROMIDE
  43. ATORVASTATIN [Concomitant]
     Active Substance: ATORVASTATIN

REACTIONS (1)
  - Pneumonia respiratory syncytial viral [Recovered/Resolved]

NARRATIVE: CASE EVENT DATE: 20170424
